FAERS Safety Report 25619543 (Version 1)
Quarter: 2025Q3

REPORT INFORMATION
  Report Type: Spontaneous
  Country: US (occurrence: US)
  Receive Date: 20250729
  Receipt Date: 20250729
  Transmission Date: 20251020
  Serious: Yes (Other)
  Sender: MALLINCKRODT
  Company Number: US-MALLINCKRODT-MNK202504546

PATIENT
  Age: 68 Year
  Sex: Male

DRUGS (3)
  1. NITRIC OXIDE [Suspect]
     Active Substance: NITRIC OXIDE
     Indication: Hypoxia
     Route: 055
     Dates: start: 20250721, end: 20250721
  2. NITRIC OXIDE [Suspect]
     Active Substance: NITRIC OXIDE
     Route: 055
     Dates: start: 20250721, end: 20250721
  3. NITRIC OXIDE [Suspect]
     Active Substance: NITRIC OXIDE
     Route: 055
     Dates: start: 20250721

REACTIONS (4)
  - Oxygen saturation decreased [Recovering/Resolving]
  - Device failure [Unknown]
  - Product use issue [Unknown]
  - Product use in unapproved indication [Unknown]

NARRATIVE: CASE EVENT DATE: 20250721
